FAERS Safety Report 10927049 (Version 2)
Quarter: 2015Q2

REPORT INFORMATION
  Report Type: Spontaneous
  Country: US (occurrence: US)
  Receive Date: 20150318
  Receipt Date: 20150429
  Transmission Date: 20150821
  Serious: No
  Sender: FDA-Public Use
  Company Number: US-GLAXOSMITHKLINE-US2015031172

PATIENT
  Sex: Male

DRUGS (4)
  1. VENTOLIN HFA [Suspect]
     Active Substance: ALBUTEROL SULFATE
     Indication: DYSPNOEA
  2. AMOXICILLIN. [Concomitant]
     Active Substance: AMOXICILLIN
  3. VENTOLIN HFA [Suspect]
     Active Substance: ALBUTEROL SULFATE
     Indication: SINUSITIS
     Dosage: 2 PUFF(S), PRN
     Route: 055
     Dates: start: 20150219
  4. FLONASE [Concomitant]
     Active Substance: FLUTICASONE PROPIONATE

REACTIONS (3)
  - Sleep terror [Recovered/Resolved]
  - Tremor [Recovered/Resolved]
  - Memory impairment [Recovered/Resolved]
